FAERS Safety Report 15328579 (Version 1)
Quarter: 2018Q3

REPORT INFORMATION
  Report Type: Spontaneous
  Country: US (occurrence: US)
  Receive Date: 20180829
  Receipt Date: 20180829
  Transmission Date: 20181010
  Serious: Yes (Hospitalization)
  Sender: FDA-Public Use
  Company Number: US-009507513-1808USA009599

PATIENT
  Age: 39 Year
  Sex: Female
  Weight: 82.1 kg

DRUGS (2)
  1. ETONOGESTREL IMPLANT? UNKNOWN [Suspect]
     Active Substance: ETONOGESTREL
     Dosage: UNK
     Route: 059
     Dates: start: 20131125, end: 20161019
  2. MIRENA [Suspect]
     Active Substance: LEVONORGESTREL
     Indication: CONTRACEPTION
     Dosage: 20 MICROGRAM, QD (20 MICROGRAM/24HR, CONT); DOSAGE FORM: INTRAUTERINE DELIVERY SYSTEM
     Route: 015
     Dates: start: 20081216, end: 20131029

REACTIONS (2)
  - Ectopic pregnancy with contraceptive device [Unknown]
  - Drug ineffective [Unknown]

NARRATIVE: CASE EVENT DATE: 20131029
